FAERS Safety Report 8004120-4 (Version None)
Quarter: 2011Q4

REPORT INFORMATION
  Report Type: 
  Country: None (occurrence: None)
  Receive Date: 20111222
  Receipt Date: 20111213
  Transmission Date: 20120403
  Serious: Yes (Hospitalization)
  Sender: FDA-Public Use
  Company Number: JP-BRISTOL-MYERS SQUIBB COMPANY-16290520

PATIENT
  Age: 64 Year
  Sex: Male

DRUGS (2)
  1. BARACLUDE [Suspect]
     Dates: end: 20110101
  2. LEVOFLOXACIN [Suspect]
     Dates: start: 20110101, end: 20110101

REACTIONS (1)
  - RENAL IMPAIRMENT [None]
